FAERS Safety Report 5773891-X (Version None)
Quarter: 2008Q2

REPORT INFORMATION
  Report Type: 
  Country: None (occurrence: None)
  Receive Date: 20080616
  Receipt Date: 20080610
  Transmission Date: 20081010
  Serious: Yes (Death)
  Sender: FDA-Public Use
  Company Number: A0732946A

PATIENT
  Age: 77 Year
  Sex: Female
  Weight: 54 kg

DRUGS (2)
  1. SERETIDE [Suspect]
     Indication: PULMONARY FIBROSIS
     Route: 055
     Dates: start: 20060301, end: 20060501
  2. PREDNISOLONE [Concomitant]
     Dosage: 5ML TWICE PER DAY
     Dates: start: 20080506

REACTIONS (3)
  - DRY THROAT [None]
  - OFF LABEL USE [None]
  - TUBERCULOSIS [None]
